FAERS Safety Report 5599374-8 (Version None)
Quarter: 2008Q1

REPORT INFORMATION
  Report Type: 
  Country: None (occurrence: None)
  Receive Date: 20080122
  Receipt Date: 20071128
  Transmission Date: 20080703
  Serious: Yes (Other)
  Sender: FDA-Public Use
  Company Number: SE-PFIZER INC-2008003754

PATIENT
  Sex: Female

DRUGS (2)
  1. HYDROXYZINE HYDROCHLORIDE [Suspect]
     Dosage: DAILY DOSE:12.5MG
  2. CITALOPRAM [Concomitant]

REACTIONS (2)
  - ABORTION [None]
  - PREGNANCY [None]
